FAERS Safety Report 6630935-0 (Version None)
Quarter: 2010Q1

REPORT INFORMATION
  Report Type: 
  Country: None (occurrence: None)
  Receive Date: 20100311
  Receipt Date: 20100303
  Transmission Date: 20100710
  Serious: No
  Sender: FDA-Public Use
  Company Number: US-BAXTER-2010BH004681

PATIENT
  Age: 58 Year
  Sex: Female

DRUGS (1)
  1. DIANEAL [Suspect]
     Indication: PERITONEAL DIALYSIS
     Route: 033
     Dates: start: 20090101

REACTIONS (3)
  - BLOOD PRESSURE ABNORMAL [None]
  - HYPERGLYCAEMIA [None]
  - HYPOGLYCAEMIA [None]
